FAERS Safety Report 13708565 (Version 2)
Quarter: 2017Q3

REPORT INFORMATION
  Report Type: Report from Study
  Country: None (occurrence: US)
  Receive Date: 20170630
  Receipt Date: 20170707
  Transmission Date: 20171127
  Serious: Yes (Death)
  Sender: FDA-Public Use
  Company Number: US-ABBVIE-17P-163-2024920-00

PATIENT
  Age: 68 Year
  Sex: Female

DRUGS (1)
  1. VENCLEXTA [Suspect]
     Active Substance: VENETOCLAX
     Indication: ACUTE MYELOID LEUKAEMIA
     Route: 048
     Dates: start: 20170624, end: 20170627

REACTIONS (3)
  - Off label use [Unknown]
  - Cerebral haemorrhage [Fatal]
  - Refractoriness to platelet transfusion [Fatal]

NARRATIVE: CASE EVENT DATE: 20170628
